FAERS Safety Report 6557498-2 (Version None)
Quarter: 2010Q1

REPORT INFORMATION
  Report Type: 
  Country: None (occurrence: None)
  Receive Date: 20100129
  Receipt Date: 20100125
  Transmission Date: 20100710
  Serious: Yes (Other)
  Sender: FDA-Public Use
  Company Number: US-ROCHE-678477

PATIENT
  Sex: Female
  Weight: 81.2 kg

DRUGS (1)
  1. CAPECITABINE [Suspect]
     Dosage: 4 TABS BID; 01 WEEK ON, 01 WEEK OFF
     Route: 048
     Dates: start: 20090925, end: 20100111

REACTIONS (2)
  - CHOLELITHIASIS [None]
  - MALIGNANT NEOPLASM PROGRESSION [None]
